FAERS Safety Report 6539341-0 (Version None)
Quarter: 2010Q1

REPORT INFORMATION
  Report Type: 
  Country: None (occurrence: None)
  Receive Date: 20100115
  Receipt Date: 20100107
  Transmission Date: 20100710
  Serious: Yes (Hospitalization, Other)
  Sender: FDA-Public Use
  Company Number: PHHO2010CZ00525

PATIENT
  Sex: Male
  Weight: 88 kg

DRUGS (4)
  1. CERTICAN [Suspect]
     Indication: LIVER TRANSPLANT
     Dosage: UNK
     Route: 048
  2. TACROLIMUS [Suspect]
     Indication: LIVER TRANSPLANT
     Dosage: 12 MG, QD
     Route: 048
  3. TACROLIMUS [Suspect]
     Dosage: 6 MG, QD
     Route: 048
  4. CELLCEPT [Suspect]
     Indication: LIVER TRANSPLANT
     Dosage: 2 G, QD
     Route: 048

REACTIONS (2)
  - HEPATIC ENZYME INCREASED [None]
  - LIVER TRANSPLANT REJECTION [None]
